FAERS Safety Report 5165933-X (Version None)
Quarter: 2006Q4

REPORT INFORMATION
  Report Type: 
  Country: None (occurrence: None)
  Receive Date: 20061206
  Receipt Date: 20061115
  Transmission Date: 20070319
  Serious: Yes (Hospitalization)
  Sender: FDA-Public Use
  Company Number: US-BOEHRINGER INGELHEIM PHARMACEUTICALS, INC.-2006-BP-13374BP

PATIENT
  Age: 52 Year
  Sex: Male
  Weight: 79.38 kg

DRUGS (3)
  1. VIRAMUNE [Suspect]
     Dates: start: 20061012, end: 20061109
  2. ATRIPLA [Concomitant]
     Dates: start: 20060922, end: 20061011
  3. TRUVADA [Concomitant]
     Dates: start: 20061012, end: 20061108

REACTIONS (6)
  - ASTHENIA [None]
  - ATRIAL FIBRILLATION [None]
  - DYSPNOEA [None]
  - DYSPNOEA EXERTIONAL [None]
  - LACTIC ACIDOSIS [None]
  - MITOCHONDRIAL TOXICITY [None]
